FAERS Safety Report 8887047 (Version 1)
Quarter: 2012Q4

REPORT INFORMATION
  Report Type: 
  Country: DE (occurrence: CA)
  Receive Date: 20121105
  Receipt Date: 20121105
  Transmission Date: 20130627
  Serious: Yes (Death)
  Sender: FDA-Public Use
  Company Number: CA-FRI-1000039990

PATIENT
  Age: 69 None
  Sex: Female

DRUGS (2)
  1. ROFLUMILAST [Suspect]
     Dosage: 500 mcg
     Route: 048
     Dates: start: 20120524, end: 2012
  2. UNSPECIFIED MEDICATION [Concomitant]

REACTIONS (3)
  - Death [Fatal]
  - Diarrhoea [Unknown]
  - Weight decreased [Unknown]
